FAERS Safety Report 7851409-5 (Version None)
Quarter: 2011Q4

REPORT INFORMATION
  Report Type: 
  Country: None (occurrence: None)
  Receive Date: 20111024
  Receipt Date: 20110929
  Transmission Date: 20120403
  Serious: Yes (Death, Life-Threatening)
  Sender: FDA-Public Use
  Company Number: 2011232237

PATIENT
  Age: 56 Year
  Sex: Male

DRUGS (5)
  1. CYTARABINE [Suspect]
     Indication: LEUKAEMIA
     Dosage: 200 MG/M2, 1X/DAY, INTRAVENOUS
     Route: 042
     Dates: start: 20100813, end: 20100819
  2. GEMTUZUMAB OZOGAMICIN (GEMTUZUMAB OZOGAMICIN) [Suspect]
     Indication: ACUTE LEUKAEMIA
     Dosage: 6 MG/M2, 1X/DAY, INTRAVENOUS
     Route: 042
     Dates: start: 20100816, end: 20100816
  3. AMLODIPINE BESYLATE [Concomitant]
  4. CERUBIDINE [Suspect]
     Indication: ACUTE LEUKAEMIA
     Dosage: 60 MG/M2, 1X/DAY, INTRAVENOUS
     Route: 042
     Dates: start: 20100813, end: 20100815
  5. VALSARTAN AND HYDROCHLOROTHIAZIDE [Concomitant]

REACTIONS (6)
  - RENAL FAILURE [None]
  - DIALYSIS [None]
  - FEBRILE BONE MARROW APLASIA [None]
  - VENOOCCLUSIVE LIVER DISEASE [None]
  - CYTOLYTIC HEPATITIS [None]
  - SEPTIC SHOCK [None]
